FAERS Safety Report 10334881 (Version 1)
Quarter: 2014Q3

REPORT INFORMATION
  Report Type: Spontaneous
  Country: US (occurrence: US)
  Receive Date: 20140723
  Receipt Date: 20140723
  Transmission Date: 20150326
  Serious: No
  Sender: FDA-Public Use
  Company Number: US-009507513-1407USA009975

PATIENT
  Age: 22 Year
  Sex: Female
  Weight: 83.45 kg

DRUGS (1)
  1. NUVARING [Suspect]
     Active Substance: ETHINYL ESTRADIOL\ETONOGESTREL
     Indication: CONTRACEPTION
     Dosage: 1 RING
     Route: 067
     Dates: start: 2010, end: 20140721

REACTIONS (2)
  - Product quality issue [Unknown]
  - Medical device discomfort [Recovered/Resolved]

NARRATIVE: CASE EVENT DATE: 20140718
